FAERS Safety Report 5711163-X (Version None)
Quarter: 2008Q2

REPORT INFORMATION
  Report Type: 
  Country: None (occurrence: None)
  Receive Date: 20080417
  Receipt Date: 20080417
  Transmission Date: 20081010
  Serious: Yes (Hospitalization)
  Sender: FDA-Public Use
  Company Number: None

PATIENT
  Age: 60 Year
  Sex: Male
  Weight: 76.6579 kg

DRUGS (14)
  1. GEMCITABINE [Suspect]
     Indication: NEOPLASM MALIGNANT
     Dosage: 1500 MG/M2 EVERY 14 DAYS IV
     Route: 042
     Dates: start: 20080128, end: 20080226
  2. PEMETREXED [Suspect]
     Indication: NEOPLASM MALIGNANT
     Dosage: 500 MG/M2 EVERY 14 DAYS IV
     Route: 042
     Dates: start: 20080129, end: 20080226
  3. GABAPENTIN [Concomitant]
  4. MINOCYCLINE HCL [Concomitant]
  5. LEXAPRO [Concomitant]
  6. SENNA [Concomitant]
  7. LIPITOR [Concomitant]
  8. COLCHICINE [Concomitant]
  9. LISINOPRIL [Concomitant]
  10. NEXIUM [Concomitant]
  11. IRON PILL [Concomitant]
  12. COLACE [Concomitant]
  13. TOPROL-XL [Concomitant]
  14. OXYCONTIN [Concomitant]

REACTIONS (4)
  - CHEST PAIN [None]
  - IMPLANTABLE DEFIBRILLATOR MALFUNCTION [None]
  - REFUSAL OF TREATMENT BY PATIENT [None]
  - SUPRAVENTRICULAR TACHYCARDIA [None]
